FAERS Safety Report 5469418-2 (Version None)
Quarter: 2007Q3

REPORT INFORMATION
  Report Type: 
  Country: None (occurrence: None)
  Receive Date: 20070927
  Receipt Date: 20070924
  Transmission Date: 20080115
  Serious: Yes (Other)
  Sender: FDA-Public Use
  Company Number: HQWYE282624SEP07

PATIENT

DRUGS (1)
  1. AMIODARONE HCL [Suspect]
     Dosage: UNKNOWN
     Route: 048

REACTIONS (3)
  - HYPOGLYCAEMIA [None]
  - HYPONATRAEMIA [None]
  - TORSADE DE POINTES [None]
